FAERS Safety Report 25033753 (Version 2)
Quarter: 2025Q3

REPORT INFORMATION
  Report Type: Report from Study
  Country: US (occurrence: US)
  Receive Date: 20250303
  Receipt Date: 20250924
  Transmission Date: 20251020
  Serious: Yes (Other)
  Sender: ABBVIE
  Company Number: US-ABBVIE-6151671

PATIENT
  Sex: Female

DRUGS (2)
  1. SKYRIZI [Suspect]
     Active Substance: RISANKIZUMAB-RZAA
     Indication: Psoriasis
     Route: 058
  2. SKYRIZI [Suspect]
     Active Substance: RISANKIZUMAB-RZAA
     Route: 058
     Dates: start: 20220629

REACTIONS (11)
  - Lipoma [Recovered/Resolved]
  - Macular degeneration [Recovering/Resolving]
  - Central nervous system lesion [Recovered/Resolved]
  - Visual impairment [Recovering/Resolving]
  - Knee operation [Recovered/Resolved]
  - Breast operation [Recovered/Resolved]
  - Gallbladder operation [Recovered/Resolved]
  - Foot operation [Recovered/Resolved]
  - Spinal operation [Recovered/Resolved]
  - Hip surgery [Recovered/Resolved]
  - Atrial fibrillation [Recovering/Resolving]
